FAERS Safety Report 5213983-7 (Version None)
Quarter: 2007Q1

REPORT INFORMATION
  Report Type: 
  Country: None (occurrence: None)
  Receive Date: 20070122
  Receipt Date: 20070112
  Transmission Date: 20070707
  Serious: Yes (Other)
  Sender: FDA-Public Use
  Company Number: US-JNJFOC-20061005379

PATIENT
  Sex: Female
  Weight: 53.07 kg

DRUGS (9)
  1. DURAGESIC-100 [Suspect]
     Route: 062
  2. DURAGESIC-100 [Suspect]
     Indication: PAIN
     Route: 062
  3. ADVAIR DISKUS 100/50 [Concomitant]
     Indication: MULTIPLE ALLERGIES
     Route: 065
  4. FLONASE [Concomitant]
     Indication: MULTIPLE ALLERGIES
     Route: 055
  5. TOPROL-XL [Concomitant]
     Indication: BLOOD PRESSURE
     Route: 048
  6. ZOCOR [Concomitant]
     Indication: BLOOD CHOLESTEROL
     Route: 048
  7. ROBAXIN [Concomitant]
     Indication: MUSCLE RELAXANT THERAPY
     Route: 048
  8. MOBIC [Concomitant]
     Indication: ARTHRITIS
     Route: 048
  9. LYRICA [Concomitant]
     Route: 048

REACTIONS (3)
  - INAPPROPRIATE SCHEDULE OF DRUG ADMINISTRATION [None]
  - MUCOUS MEMBRANE DISORDER [None]
  - THROAT TIGHTNESS [None]
